FAERS Safety Report 5367250-1 (Version None)
Quarter: 2007Q2

REPORT INFORMATION
  Report Type: 
  Country: None (occurrence: None)
  Receive Date: 20070620
  Receipt Date: 20070620
  Transmission Date: 20071010
  Serious: Yes (Other)
  Sender: FDA-Public Use
  Company Number: None

PATIENT
  Sex: Male
  Weight: 31.7518 kg

DRUGS (1)
  1. CITANEST [Suspect]
     Indication: DENTAL CARIES
     Dosage: ~0.2CC% INFILTRATION AROUND PRIMARY TOOTH ^S^
     Dates: start: 20061228

REACTIONS (2)
  - POST PROCEDURAL COMPLICATION [None]
  - SWELLING FACE [None]
